FAERS Safety Report 4846113-1 (Version None)
Quarter: 2005Q4

REPORT INFORMATION
  Report Type: 
  Country: None (occurrence: None)
  Receive Date: 20051201
  Receipt Date: 20051118
  Transmission Date: 20060501
  Serious: Yes (Death)
  Sender: FDA-Public Use
  Company Number: 2005150297

PATIENT
  Sex: Male

DRUGS (1)
  1. XALATAN [Suspect]
     Indication: GLAUCOMA
     Dosage: (1 DROP, QD), OPHTHALMIC
     Route: 047
     Dates: start: 19920101, end: 19930101

REACTIONS (1)
  - MYOCARDIAL INFARCTION [None]
